FAERS Safety Report 13580816 (Version 2)
Quarter: 2017Q3

REPORT INFORMATION
  Report Type: Report from Study
  Country: BR (occurrence: BR)
  Receive Date: 20170525
  Receipt Date: 20170925
  Transmission Date: 20171127
  Serious: Yes (Hospitalization, Other)
  Sender: FDA-Public Use
  Company Number: BR-JNJFOC-20160921397

PATIENT
  Age: 57 Year
  Sex: Female
  Weight: 70 kg

DRUGS (21)
  1. SIMPONI [Suspect]
     Active Substance: GOLIMUMAB
     Indication: FELTY^S SYNDROME
     Route: 058
     Dates: start: 20160805, end: 20160805
  2. SIMPONI [Suspect]
     Active Substance: GOLIMUMAB
     Indication: RHEUMATOID ARTHRITIS
     Route: 058
     Dates: start: 20160805, end: 20160805
  3. TREZOR [Concomitant]
     Active Substance: ROSUVASTATIN CALCIUM
     Route: 065
  4. ESOMEPRAZOLE [Concomitant]
     Active Substance: ESOMEPRAZOLE
     Route: 065
  5. ACETYLSALICYLIC ACID [Concomitant]
     Active Substance: ASPIRIN
     Route: 065
  6. OMEPRAZOLE. [Concomitant]
     Active Substance: OMEPRAZOLE
     Route: 065
  7. SILICON [Concomitant]
     Active Substance: SILICON
     Route: 065
  8. ACETYLCYSTEINE. [Concomitant]
     Active Substance: ACETYLCYSTEINE
     Route: 065
  9. ARAVA [Concomitant]
     Active Substance: LEFLUNOMIDE
     Route: 065
  10. ASPIRIN. [Concomitant]
     Active Substance: ASPIRIN
     Route: 065
  11. ESOMEPRAZOLE [Concomitant]
     Active Substance: ESOMEPRAZOLE
     Route: 065
  12. CRESTOR [Concomitant]
     Active Substance: ROSUVASTATIN CALCIUM
     Route: 065
  13. SIMPONI [Suspect]
     Active Substance: GOLIMUMAB
     Indication: RHEUMATOID ARTHRITIS
     Route: 058
     Dates: start: 20160905
  14. PREDNISONE. [Concomitant]
     Active Substance: PREDNISONE
     Route: 065
  15. ATACAND HCT [Concomitant]
     Active Substance: CANDESARTAN CILEXETIL\HYDROCHLOROTHIAZIDE
     Route: 065
  16. ACETYLSALICYLIC ACID [Concomitant]
     Active Substance: ASPIRIN
     Route: 065
  17. SIMPONI [Suspect]
     Active Substance: GOLIMUMAB
     Indication: FELTY^S SYNDROME
     Route: 058
     Dates: start: 20160905
  18. PIROXICAM. [Concomitant]
     Active Substance: PIROXICAM
     Route: 065
  19. CELECOXIBE [Concomitant]
     Route: 065
  20. LEUCOGEN [Concomitant]
     Active Substance: LEUCOGEN
     Route: 065
  21. TRAMADOL. [Concomitant]
     Active Substance: TRAMADOL
     Route: 065

REACTIONS (17)
  - Limb operation [Unknown]
  - Arthritis [Unknown]
  - Bronchitis [Recovered/Resolved]
  - Rheumatoid arthritis [Unknown]
  - Blood pressure decreased [Unknown]
  - Product use in unapproved indication [Unknown]
  - Off label use [Unknown]
  - Diarrhoea [Unknown]
  - Blood sodium abnormal [Unknown]
  - Walking aid user [Unknown]
  - Allergic sinusitis [Recovered/Resolved]
  - Myocardial infarction [Unknown]
  - Irritable bowel syndrome [Unknown]
  - Rheumatic disorder [Recovering/Resolving]
  - Drug ineffective [Unknown]
  - Transfusion [Unknown]
  - Pain in extremity [Unknown]

NARRATIVE: CASE EVENT DATE: 2016
